FAERS Safety Report 7554020-9 (Version None)
Quarter: 2011Q2

REPORT INFORMATION
  Report Type: 
  Country: None (occurrence: None)
  Receive Date: 20110614
  Receipt Date: 20110614
  Transmission Date: 20111010
  Serious: Yes (Hospitalization)
  Sender: FDA-Public Use
  Company Number: None

PATIENT
  Sex: Male
  Weight: 98 kg

DRUGS (5)
  1. COMPAZINE [Concomitant]
  2. ZOFRAN [Concomitant]
  3. MULTI-VITAMIN [Concomitant]
  4. SUNITINIB MALATE [Suspect]
     Indication: RENAL CANCER METASTATIC
     Dosage: 37.5 MG QD X28 EVERY 6WK
     Dates: start: 20100902, end: 20110608
  5. INDOMETHACINE [Concomitant]

REACTIONS (3)
  - URINARY TRACT INFECTION [None]
  - PNEUMONIA [None]
  - ESCHERICHIA TEST POSITIVE [None]
